FAERS Safety Report 20509357 (Version 1)
Quarter: 2022Q1

REPORT INFORMATION
  Report Type: Spontaneous
  Country: RO (occurrence: RO)
  Receive Date: 20220223
  Receipt Date: 20220223
  Transmission Date: 20220423
  Serious: Yes (Life-Threatening)
  Sender: FDA-Public Use
  Company Number: RO-NMA-2022-SP44615

PATIENT
  Age: 31 Year
  Sex: Female

DRUGS (1)
  1. CEFUROXIME [Suspect]
     Active Substance: CEFUROXIME
     Indication: Prophylaxis
     Dosage: 1.5 GRAM, 1 TOTAL
     Route: 042
     Dates: start: 20220111, end: 20220111

REACTIONS (2)
  - Hypertension [Recovered/Resolved]
  - Rash [Recovered/Resolved]

NARRATIVE: CASE EVENT DATE: 20220111
